FAERS Safety Report 17044230 (Version 2)
Quarter: 2019Q4

REPORT INFORMATION
  Report Type: Spontaneous
  Country: ES (occurrence: ES)
  Receive Date: 20191118
  Receipt Date: 20191126
  Transmission Date: 20200122
  Serious: Yes (Hospitalization, Other)
  Sender: FDA-Public Use
  Company Number: ES-GILEAD-2019-0437785

PATIENT
  Age: 70 Year
  Sex: Female

DRUGS (20)
  1. LINAGLIPTIN [Concomitant]
     Active Substance: LINAGLIPTIN
  2. CALCIUM D [CALCIUM;COLECALCIFEROL] [Concomitant]
  3. DILTIAZEM. [Concomitant]
     Active Substance: DILTIAZEM
  4. ATORVASTATINE [ATORVASTATIN] [Concomitant]
     Active Substance: ATORVASTATIN
  5. LORAZEPAM. [Concomitant]
     Active Substance: LORAZEPAM
  6. BUDESONIDE. [Concomitant]
     Active Substance: BUDESONIDE
  7. ACETYLSALICYLIC ACID [Concomitant]
     Active Substance: ASPIRIN
  8. OMEPRAZOLE. [Concomitant]
     Active Substance: OMEPRAZOLE
     Dosage: 20 MG, QD
  9. EMPAGLIFLOZIN [Concomitant]
     Active Substance: EMPAGLIFLOZIN
  10. TIOTROPIO [Concomitant]
     Active Substance: TIOTROPIUM BROMIDE
  11. HIDROFEROL [Concomitant]
     Active Substance: CALCIFEDIOL
  12. EPCLUSA [Suspect]
     Active Substance: SOFOSBUVIR\VELPATASVIR
     Indication: CHRONIC HEPATITIS C
     Dosage: UNK
     Route: 065
     Dates: start: 201909, end: 20191128
  13. INSULIN [Concomitant]
     Active Substance: INSULIN NOS
  14. LISINOPRIL. [Concomitant]
     Active Substance: LISINOPRIL
  15. SALBUTAMOL [Concomitant]
     Active Substance: ALBUTEROL
  16. TRAMADOL/PARACETAMOL [Concomitant]
     Active Substance: ACETAMINOPHEN\TRAMADOL
  17. MOMETASONE [Concomitant]
     Active Substance: MOMETASONE
  18. ATORVASTATIN [Concomitant]
     Active Substance: ATORVASTATIN
  19. PAROXETINE. [Concomitant]
     Active Substance: PAROXETINE
  20. TARDYFERON [Concomitant]
     Active Substance: FERROUS SULFATE

REACTIONS (4)
  - Abdominal pain [Unknown]
  - Portal vein thrombosis [Unknown]
  - Haematochezia [Unknown]
  - Diarrhoea [Unknown]
